FAERS Safety Report 9773887 (Version 3)
Quarter: 2014Q2

REPORT INFORMATION
  Report Type: Spontaneous
  Country: JP (occurrence: JP)
  Receive Date: 20131220
  Receipt Date: 20140521
  Transmission Date: 20141212
  Serious: Yes (Life-Threatening)
  Sender: FDA-Public Use
  Company Number: JP-ROCHE-1319535

PATIENT
  Age: 79 Year
  Sex: Female

DRUGS (7)
  1. ACTEMRA [Suspect]
     Indication: RHEUMATOID ARTHRITIS
     Dosage: LAST DOSE OF PRIOR TO EVENT:17/OCT/2013
     Route: 058
     Dates: start: 20130620, end: 20131017
  2. PARIET [Concomitant]
     Route: 048
     Dates: start: 20131003
  3. MAGMITT [Concomitant]
     Dosage: MOTION [MITE] CAN BE ADDED AND SUBTRACTED.
     Route: 048
     Dates: start: 20131003
  4. HALCION [Concomitant]
     Route: 048
     Dates: start: 20131003
  5. ALOSENN [Concomitant]
     Route: 048
     Dates: start: 20131003
  6. TSUMURA RIKKUNSHITO [Concomitant]
     Route: 048
     Dates: start: 20131003
  7. GASMOTIN [Concomitant]
     Route: 048
     Dates: start: 20131003

REACTIONS (2)
  - Pancytopenia [Recovered/Resolved]
  - Nasopharyngitis [Recovered/Resolved]
